FAERS Safety Report 13370918 (Version 2)
Quarter: 2017Q1

REPORT INFORMATION
  Report Type: Spontaneous
  Country: US (occurrence: US)
  Receive Date: 20170324
  Receipt Date: 20170331
  Transmission Date: 20170429
  Serious: Yes (Other)
  Sender: FDA-Public Use
  Company Number: US-009507513-1703USA009432

PATIENT

DRUGS (1)
  1. BRIDION [Suspect]
     Active Substance: SUGAMMADEX
     Indication: PRODUCT USED FOR UNKNOWN INDICATION

REACTIONS (5)
  - Bradycardia [Unknown]
  - Salivary hypersecretion [Unknown]
  - Laryngospasm [Unknown]
  - Cardiac arrest [Unknown]
  - Atrial fibrillation [Unknown]
